FAERS Safety Report 7916653-7 (Version None)
Quarter: 2011Q4

REPORT INFORMATION
  Report Type: 
  Country: None (occurrence: None)
  Receive Date: 20111114
  Receipt Date: 20111028
  Transmission Date: 20120403
  Serious: Yes (Death)
  Sender: FDA-Public Use
  Company Number: CN-AGG-10-2011-0177

PATIENT
  Age: 8 Decade

DRUGS (4)
  1. AGGRASTAT [Suspect]
     Indication: ACUTE MYOCARDIAL INFARCTION
     Dosage: DOSE NOT REPORTED
     Dates: start: 20111023, end: 20111025
  2. ASPIRIN [Concomitant]
  3. ENOXAPARIN SODIUM [Concomitant]
  4. PLAVIX [Concomitant]

REACTIONS (1)
  - CEREBRAL HAEMORRHAGE [None]
